FAERS Safety Report 11685046 (Version 5)
Quarter: 2016Q4

REPORT INFORMATION
  Report Type: Report from Study
  Country: US (occurrence: US)
  Receive Date: 20151030
  Receipt Date: 20161229
  Transmission Date: 20170206
  Serious: No
  Sender: FDA-Public Use
  Company Number: US-AMGEN-USASL2015112161

PATIENT
  Age: 72 Year
  Sex: Male

DRUGS (2)
  1. ENBREL [Suspect]
     Active Substance: ETANERCEPT
     Dosage: UNK
     Route: 065
  2. ENBREL [Suspect]
     Active Substance: ETANERCEPT
     Indication: ARTHRITIS
     Dosage: 50 MG, QWK
     Route: 065
     Dates: start: 2013

REACTIONS (9)
  - Drug dose omission [Unknown]
  - Scratch [Unknown]
  - Underdose [Unknown]
  - Pain in extremity [Not Recovered/Not Resolved]
  - Injection site haemorrhage [Unknown]
  - Pain [Not Recovered/Not Resolved]
  - Injection site pain [Unknown]
  - Injection site hypoaesthesia [Unknown]
  - Arthritis [Unknown]

NARRATIVE: CASE EVENT DATE: 201510
